FAERS Safety Report 12374179 (Version 1)
Quarter: 2016Q2

REPORT INFORMATION
  Report Type: Spontaneous
  Country: TR (occurrence: TR)
  Receive Date: 20160517
  Receipt Date: 20160517
  Transmission Date: 20160815
  Serious: Yes (Hospitalization)
  Sender: FDA-Public Use
  Company Number: TR-FERRINGPH-2016FE02093

PATIENT

DRUGS (1)
  1. CHORIONIC GONADOTROPHIN [Suspect]
     Active Substance: CHORIOGONADOTROPIN ALFA
     Indication: OVERWEIGHT
     Dosage: INJECTION EVERY DAY FOR ABOUT 8 MONTHS
     Route: 058

REACTIONS (3)
  - Product use issue [Unknown]
  - Drug-induced liver injury [Unknown]
  - Incorrect route of drug administration [Unknown]
